FAERS Safety Report 7546446-4 (Version None)
Quarter: 2011Q2

REPORT INFORMATION
  Report Type: 
  Country: None (occurrence: None)
  Receive Date: 20110614
  Receipt Date: 20110606
  Transmission Date: 20111010
  Serious: Yes (Other)
  Sender: FDA-Public Use
  Company Number: GR-JNJFOC-20110603000

PATIENT
  Age: 67 Year
  Sex: Male

DRUGS (2)
  1. DORIBAX [Suspect]
     Indication: ABDOMINAL INFECTION
     Route: 041
  2. DORIBAX [Suspect]
     Route: 041

REACTIONS (1)
  - LEUKOPENIA [None]
